FAERS Safety Report 8563235-2 (Version None)
Quarter: 2012Q3

REPORT INFORMATION
  Report Type: 
  Country: None (occurrence: None)
  Receive Date: 20120802
  Receipt Date: 20120727
  Transmission Date: 20120928
  Serious: Yes (Other)
  Sender: FDA-Public Use
  Company Number: US-AMGEN-USASP2011003654

PATIENT
  Age: 10 Year
  Sex: Female
  Weight: 53.8 kg

DRUGS (2)
  1. ENBREL [Suspect]
     Indication: PYREXIA
     Dosage: 25 MG, 2 TIMES/WK
     Route: 058
     Dates: start: 20090319
  2. ENBREL [Suspect]
     Dosage: 50 MG, QWK
     Dates: start: 20050505

REACTIONS (3)
  - PHARYNGITIS STREPTOCOCCAL [None]
  - SCARLET FEVER [None]
  - PYREXIA [None]
